FAERS Safety Report 26089746 (Version 1)
Quarter: 2025Q4

REPORT INFORMATION
  Report Type: Report from Study
  Country: US (occurrence: US)
  Receive Date: 20251125
  Receipt Date: 20251125
  Transmission Date: 20260118
  Serious: Yes (Other)
  Sender: ABBVIE
  Company Number: US-ABBVIE-6560096

PATIENT
  Age: 35 Year
  Sex: Female

DRUGS (7)
  1. SYNTHROID [Suspect]
     Active Substance: LEVOTHYROXINE SODIUM
     Indication: Hypothyroidism
     Dosage: TAKE ONE TABLET IN THE MORNING
     Route: 048
     Dates: start: 202511
  2. SYNTHROID [Suspect]
     Active Substance: LEVOTHYROXINE SODIUM
     Indication: Hypothyroidism
     Dosage: LAST ADMIN DATE: 2025
     Route: 048
  3. LEVOTHYROXINE [Suspect]
     Active Substance: LEVOTHYROXINE
     Indication: Hypothyroidism
     Route: 048
  4. VITAMINS [Concomitant]
     Active Substance: VITAMINS
     Indication: Product used for unknown indication
  5. SERTRALINE [Concomitant]
     Active Substance: SERTRALINE HYDROCHLORIDE
     Indication: Product used for unknown indication
  6. SILENOR [Concomitant]
     Active Substance: DOXEPIN HYDROCHLORIDE
     Indication: Product used for unknown indication
  7. VITAMIN B12 [Concomitant]
     Active Substance: CYANOCOBALAMIN
     Indication: Product used for unknown indication

REACTIONS (5)
  - Abortion spontaneous [Unknown]
  - Drug ineffective [Unknown]
  - In vitro fertilisation [Unknown]
  - Blood thyroid stimulating hormone abnormal [Unknown]
  - Maternal exposure during pregnancy [Unknown]

NARRATIVE: CASE EVENT DATE: 20251101
